FAERS Safety Report 5495496-0 (Version None)
Quarter: 2007Q4

REPORT INFORMATION
  Report Type: 
  Country: None (occurrence: None)
  Receive Date: 20071023
  Receipt Date: 20071011
  Transmission Date: 20080405
  Serious: Yes (Hospitalization)
  Sender: FDA-Public Use
  Company Number: 238246K07USA

PATIENT
  Age: 60 Year
  Sex: Female

DRUGS (6)
  1. REBIF [Suspect]
     Indication: MULTIPLE SCLEROSIS
     Dosage: 44 MCG, 3 IN 1 WEEKS, SUBCUTANEOUS
     Route: 058
     Dates: start: 20020708
  2. IBUPROFEN [Concomitant]
  3. RESTORIL [Concomitant]
  4. AMITRIPTYLINE HCL [Concomitant]
  5. BACTRIM [Concomitant]
  6. FLAXSEED (LINUM USITATISSIMUM SEED OIL) [Concomitant]

REACTIONS (10)
  - BLOOD CHOLESTEROL INCREASED [None]
  - BLOOD TRIGLYCERIDES INCREASED [None]
  - CONSTIPATION [None]
  - FALL [None]
  - INJECTION SITE ERYTHEMA [None]
  - INTESTINAL OBSTRUCTION [None]
  - JOINT INJURY [None]
  - JOINT SWELLING [None]
  - NO THERAPEUTIC RESPONSE [None]
  - SWELLING [None]
